FAERS Safety Report 13913854 (Version 1)
Quarter: 2017Q3

REPORT INFORMATION
  Report Type: Spontaneous
  Country: US (occurrence: US)
  Receive Date: 20170828
  Receipt Date: 20170828
  Transmission Date: 20171127
  Serious: No
  Sender: FDA-Public Use
  Company Number: US-ROCHE-1140579

PATIENT
  Sex: Male
  Weight: 32.6 kg

DRUGS (10)
  1. PREDNISOLONE. [Concomitant]
     Active Substance: PREDNISOLONE
     Route: 065
  2. NORVASC [Concomitant]
     Active Substance: AMLODIPINE BESYLATE
     Route: 065
  3. PROGRAF [Concomitant]
     Active Substance: TACROLIMUS\TACROLIMUS ANHYDROUS
     Route: 065
  4. NA BICARBONATE [Concomitant]
     Route: 065
  5. NIFEREX (POLYSACCHARIDE-IRON COMPLEX) [Concomitant]
     Active Substance: IRON\POLYSACCHARIDES
     Route: 065
  6. NITROSPAN [Concomitant]
     Route: 065
  7. EPOGEN [Concomitant]
     Active Substance: ERYTHROPOIETIN
     Route: 065
  8. NUTROPIN AQ [Suspect]
     Active Substance: SOMATROPIN
     Indication: END STAGE RENAL DISEASE
     Route: 065
     Dates: start: 199707
  9. NORMODYNE [Concomitant]
     Active Substance: LABETALOL HYDROCHLORIDE
     Route: 065
  10. NUTROPIN AQ [Suspect]
     Active Substance: SOMATROPIN
     Indication: RENAL DYSPLASIA

REACTIONS (4)
  - Ear pain [Unknown]
  - Cough [Unknown]
  - Rash [Unknown]
  - Pruritus [Unknown]
